FAERS Safety Report 4719104-9 (Version None)
Quarter: 2005Q3

REPORT INFORMATION
  Report Type: 
  Country: None (occurrence: None)
  Receive Date: 20050720
  Receipt Date: 20041004
  Transmission Date: 20060218
  Serious: Yes (Hospitalization)
  Sender: FDA-Public Use
  Company Number: DE-MERCK-0410DEU00059

PATIENT
  Age: 59 Year
  Sex: Male
  Weight: 96 kg

DRUGS (4)
  1. VIOXX [Suspect]
     Indication: ARTHRALGIA
     Route: 048
     Dates: start: 20010601, end: 20040901
  2. VIOXX [Suspect]
     Route: 048
     Dates: start: 20010601, end: 20040901
  3. VIOXX [Suspect]
     Indication: PAIN
     Route: 048
     Dates: start: 20010601, end: 20040901
  4. VIOXX [Suspect]
     Route: 048
     Dates: start: 20010601, end: 20040901

REACTIONS (6)
  - CORONARY ARTERY DISEASE [None]
  - CORONARY ARTERY STENOSIS [None]
  - DEPRESSION [None]
  - DIZZINESS [None]
  - NAUSEA [None]
  - PRESCRIBED OVERDOSE [None]
